FAERS Safety Report 6687826-9 (Version None)
Quarter: 2010Q2

REPORT INFORMATION
  Report Type: 
  Country: None (occurrence: None)
  Receive Date: 20100420
  Receipt Date: 20100408
  Transmission Date: 20101027
  Serious: Yes (Hospitalization)
  Sender: FDA-Public Use
  Company Number: US-BAYER-201019134NA

PATIENT
  Age: 41 Year
  Sex: Female
  Weight: 45 kg

DRUGS (1)
  1. MIRENA [Suspect]
     Indication: METRORRHAGIA
     Dosage: FREQUENCY CONTINUOUS
     Route: 015
     Dates: start: 20080819, end: 20090612

REACTIONS (8)
  - ABDOMINAL PAIN [None]
  - DEVICE DISLOCATION [None]
  - DISCOMFORT [None]
  - DYSMENORRHOEA [None]
  - NAUSEA [None]
  - PAIN [None]
  - PROCEDURAL PAIN [None]
  - VAGINAL HAEMORRHAGE [None]
